FAERS Safety Report 16451583 (Version 1)
Quarter: 2019Q2

REPORT INFORMATION
  Report Type: Spontaneous
  Country: US (occurrence: US)
  Receive Date: 20190619
  Receipt Date: 20190619
  Transmission Date: 20190711
  Serious: No
  Sender: FDA-Public Use
  Company Number: US-ALLERGAN-1859288US

PATIENT
  Age: 18 Year
  Sex: Female
  Weight: 54.42 kg

DRUGS (1)
  1. ESTROSTEP FE [Suspect]
     Active Substance: ETHINYL ESTRADIOL\NORETHINDRONE ACETATE
     Indication: CONTRACEPTION
     Route: 048

REACTIONS (2)
  - Product dose omission [Unknown]
  - Inappropriate schedule of product administration [Unknown]
